FAERS Safety Report 8535514-6 (Version None)
Quarter: 2012Q3

REPORT INFORMATION
  Report Type: 
  Country: None (occurrence: None)
  Receive Date: 20120718
  Receipt Date: 20120718
  Transmission Date: 20120928
  Serious: Yes (Life-Threatening)
  Sender: FDA-Public Use
  Company Number: None

PATIENT
  Age: 67 Year
  Sex: Female
  Weight: 80.7403 kg

DRUGS (3)
  1. FLECTOR [Suspect]
     Indication: TENDONITIS
     Dosage: 1 PATCH Q 12 HR ID
     Route: 023
     Dates: start: 20120710, end: 20120712
  2. FLECTOR [Suspect]
     Indication: CALCINOSIS
     Dosage: 1 PATCH Q 12 HR ID
     Route: 023
     Dates: start: 20120710, end: 20120712
  3. FLECTOR [Suspect]
     Indication: ARTHRITIS
     Dosage: 1 PATCH Q 12 HR ID
     Route: 023
     Dates: start: 20120710, end: 20120712

REACTIONS (1)
  - PORPHYRIA ACUTE [None]
